FAERS Safety Report 5162878-6 (Version None)
Quarter: 2006Q4

REPORT INFORMATION
  Report Type: 
  Country: None (occurrence: None)
  Receive Date: 20061121
  Receipt Date: 20061110
  Transmission Date: 20070319
  Serious: Yes (Hospitalization)
  Sender: FDA-Public Use
  Company Number: 2006-02530

PATIENT
  Age: 56 Year
  Sex: Female
  Weight: 62 kg

DRUGS (10)
  1. VELCADE [Suspect]
     Indication: MULTIPLE MYELOMA
     Dosage: 1.30 MG/M2, INTRAVENOUS
     Route: 042
     Dates: start: 20060906, end: 20060916
  2. DOXIL [Suspect]
     Indication: MULTIPLE MYELOMA
     Dosage: 30.00 MG/M2, INTRAVENOUS
     Route: 042
     Dates: start: 20060909, end: 20060909
  3. DEXAMETHASONE [Suspect]
     Indication: MULTIPLE MYELOMA
     Dosage: 40.00 MG, ORAL
     Route: 048
     Dates: start: 20060906, end: 20060917
  4. OXYCODONE HCL [Concomitant]
  5. POTASSIUM (POTASSIUM) [Concomitant]
  6. LASIX [Concomitant]
  7. PROTONIX [Concomitant]
  8. ACYCLOVIR [Concomitant]
  9. LOVENOX [Concomitant]
  10. SEROQUEL [Concomitant]

REACTIONS (12)
  - AGITATION [None]
  - ALANINE AMINOTRANSFERASE INCREASED [None]
  - ASPARTATE AMINOTRANSFERASE INCREASED [None]
  - BLOOD ALKALINE PHOSPHATASE INCREASED [None]
  - BLOOD POTASSIUM DECREASED [None]
  - DELUSION [None]
  - HALLUCINATION, VISUAL [None]
  - INTERVERTEBRAL DISC COMPRESSION [None]
  - MANIA [None]
  - PARANOIA [None]
  - PRESSURE OF SPEECH [None]
  - SUICIDAL IDEATION [None]
